FAERS Safety Report 17753464 (Version 2)
Quarter: 2020Q2

REPORT INFORMATION
  Report Type: Spontaneous
  Country: US (occurrence: US)
  Receive Date: 20200506
  Receipt Date: 20200528
  Transmission Date: 20200714
  Serious: No
  Sender: FDA-Public Use
  Company Number: US-009507513-2004USA009229

PATIENT
  Age: 21 Year
  Sex: Female
  Weight: 146.94 kg

DRUGS (3)
  1. NEXPLANON [Suspect]
     Active Substance: ETONOGESTREL
     Dosage: IMPLANT
     Route: 059
     Dates: start: 20200312
  2. NEXPLANON [Suspect]
     Active Substance: ETONOGESTREL
     Indication: CONTRACEPTION
     Dosage: IMPLANT
     Route: 059
     Dates: start: 2016, end: 20181030
  3. VITAMIN D (UNSPECIFIED) [Concomitant]
     Active Substance: VITAMIN D NOS
     Indication: VITAMIN D DEFICIENCY
     Dosage: 200 UNITS PER ORAL DAILY
     Route: 048
     Dates: start: 20200312

REACTIONS (8)
  - Hepatic enzyme increased [Unknown]
  - Glycosylated haemoglobin abnormal [Unknown]
  - Mood swings [Recovered/Resolved]
  - Implant site pain [Not Recovered/Not Resolved]
  - Sensory disturbance [Unknown]
  - Discomfort [Unknown]
  - Vitamin D decreased [Unknown]
  - Adhesion [Unknown]

NARRATIVE: CASE EVENT DATE: 2020
